FAERS Safety Report 17457300 (Version 4)
Quarter: 2020Q3

REPORT INFORMATION
  Report Type: Spontaneous
  Country: JP (occurrence: JP)
  Receive Date: 20200225
  Receipt Date: 20200715
  Transmission Date: 20201102
  Serious: Yes (Death)
  Sender: FDA-Public Use
  Company Number: JP-JNJFOC-20200232189

PATIENT
  Age: 38 Year
  Sex: Male
  Weight: 77 kg

DRUGS (8)
  1. XEPLION [Suspect]
     Active Substance: PALIPERIDONE PALMITATE
     Indication: SCHIZOPHRENIA
     Dosage: LEFT DELTOID MUSCLE
     Route: 030
     Dates: start: 20200108, end: 20200108
  2. XEPLION [Suspect]
     Active Substance: PALIPERIDONE PALMITATE
     Dosage: LEFT DELTOID MUSCLE
     Route: 030
     Dates: start: 20200212, end: 20200212
  3. AMLODIPINE [Concomitant]
     Active Substance: AMLODIPINE BESYLATE
     Indication: HYPERTENSION
     Route: 048
     Dates: start: 20191001, end: 20200217
  4. BELSOMRA [Concomitant]
     Active Substance: SUVOREXANT
     Indication: INSOMNIA
     Route: 048
     Dates: start: 201911, end: 20200216
  5. GOREISAN [Concomitant]
     Active Substance: HERBALS
     Indication: THIRST
     Route: 048
     Dates: start: 201911, end: 20200217
  6. FLUVOXAMINE MALEATE. [Concomitant]
     Active Substance: FLUVOXAMINE MALEATE
     Indication: DEPRESSION
     Route: 048
     Dates: start: 20170524, end: 20200217
  7. XEPLION [Suspect]
     Active Substance: PALIPERIDONE PALMITATE
     Dosage: RIGHT DELTOID MUSCLE
     Route: 030
     Dates: start: 20200115, end: 20200115
  8. SYCREST [Suspect]
     Active Substance: ASENAPINE MALEATE
     Indication: SCHIZOPHRENIA
     Route: 060
     Dates: start: 20180827, end: 20200216

REACTIONS (1)
  - Choking [Fatal]

NARRATIVE: CASE EVENT DATE: 20200217
